FAERS Safety Report 8416545-3 (Version None)
Quarter: 2012Q2

REPORT INFORMATION
  Report Type: 
  Country: None (occurrence: None)
  Receive Date: 20120606
  Receipt Date: 20120601
  Transmission Date: 20120825
  Serious: Yes (Hospitalization)
  Sender: FDA-Public Use
  Company Number: FR-GLAXOSMITHKLINE-B0799744A

PATIENT
  Sex: Male
  Weight: 55 kg

DRUGS (1)
  1. ARIXTRA [Suspect]
     Indication: THROMBOPHLEBITIS
     Dosage: 7.5MG PER DAY
     Route: 058
     Dates: start: 20120314

REACTIONS (3)
  - ANAEMIA [None]
  - INCORRECT DRUG ADMINISTRATION DURATION [None]
  - MUSCLE HAEMORRHAGE [None]
